FAERS Safety Report 23084761 (Version 2)
Quarter: 2023Q4

REPORT INFORMATION
  Report Type: Spontaneous
  Country: FR (occurrence: FR)
  Receive Date: 20231019
  Receipt Date: 20231211
  Transmission Date: 20240110
  Serious: Yes (Hospitalization, Other)
  Sender: FDA-Public Use
  Company Number: FR-AFSSAPS-AN2023000876

PATIENT
  Age: 75 Year
  Sex: Male

DRUGS (11)
  1. ERTAPENEM [Suspect]
     Active Substance: ERTAPENEM
     Indication: Intervertebral discitis
     Dosage: 2 GRAM, DAILY
     Route: 040
     Dates: end: 20230510
  2. CILASTATIN SODIUM\IMIPENEM [Suspect]
     Active Substance: CILASTATIN SODIUM\IMIPENEM
     Indication: Intervertebral discitis
     Dosage: 3 GRAM, DAILY
     Route: 040
     Dates: start: 20230504, end: 20230509
  3. IRBESARTAN [Concomitant]
     Active Substance: IRBESARTAN
     Indication: Product used for unknown indication
     Route: 048
  4. NICARDIPINE HYDROCHLORIDE [Concomitant]
     Active Substance: NICARDIPINE HYDROCHLORIDE
     Indication: Product used for unknown indication
     Route: 048
  5. DAPAGLIFLOZIN [Concomitant]
     Active Substance: DAPAGLIFLOZIN
     Indication: Product used for unknown indication
     Dosage: 10 MILLIGRAM, DAILY
     Route: 048
  6. PRAVASTATIN SODIUM [Concomitant]
     Active Substance: PRAVASTATIN SODIUM
     Indication: Product used for unknown indication
     Route: 048
  7. PANTOPRAZOLE [Concomitant]
     Active Substance: PANTOPRAZOLE
     Indication: Product used for unknown indication
     Dosage: 40 MILLIGRAM, DAILY
     Route: 048
     Dates: start: 20230504
  8. TINZAPARINE SODIUM [Concomitant]
     Indication: Product used for unknown indication
     Dosage: 14000 INTERNATIONAL UNIT, DAILY
     Route: 040
     Dates: start: 20230504
  9. GLUCOPHAGE [Concomitant]
     Active Substance: METFORMIN HYDROCHLORIDE
     Indication: Product used for unknown indication
     Route: 048
  10. GLIMEPIRIDE [Concomitant]
     Active Substance: GLIMEPIRIDE
     Indication: Product used for unknown indication
     Route: 048
  11. HYDROCHLOROTHIAZIDE [Concomitant]
     Active Substance: HYDROCHLOROTHIAZIDE
     Indication: Product used for unknown indication
     Route: 048

REACTIONS (2)
  - Clonic convulsion [Recovered/Resolved]
  - Confusional state [Recovered/Resolved]

NARRATIVE: CASE EVENT DATE: 20230506
